FAERS Safety Report 15837444 (Version 2)
Quarter: 2019Q1

REPORT INFORMATION
  Report Type: Spontaneous
  Country: ES (occurrence: ES)
  Receive Date: 20190117
  Receipt Date: 20190122
  Transmission Date: 20190417
  Serious: Yes (Life-Threatening, Hospitalization)
  Sender: FDA-Public Use
  Company Number: ES-JNJFOC-20190116658

PATIENT
  Age: 32 Year
  Sex: Female

DRUGS (4)
  1. IBUPROFEN. [Suspect]
     Active Substance: IBUPROFEN
     Indication: PERICARDITIS
     Route: 048
     Dates: start: 20180122, end: 20180203
  2. SINTROM [Interacting]
     Active Substance: ACENOCOUMAROL
     Indication: AORTIC VALVE REPLACEMENT
     Route: 048
     Dates: start: 20180119, end: 20180203
  3. IBUPROFEN. [Suspect]
     Active Substance: IBUPROFEN
     Route: 048
  4. COLCHIMAX [Concomitant]
     Indication: PERICARDITIS
     Route: 048
     Dates: start: 20180122, end: 20180203

REACTIONS (2)
  - Shock haemorrhagic [Recovered/Resolved]
  - Haemothorax [Recovered/Resolved]
